FAERS Safety Report 13713534 (Version 2)
Quarter: 2017Q3

REPORT INFORMATION
  Report Type: Spontaneous
  Country: JP (occurrence: JP)
  Receive Date: 20170704
  Receipt Date: 20170721
  Transmission Date: 20171127
  Serious: Yes (Other)
  Sender: FDA-Public Use
  Company Number: JP-BAUSCH-BL-2017-020343

PATIENT
  Age: 70 Year
  Sex: Male

DRUGS (3)
  1. VISUDYNE [Suspect]
     Active Substance: VERTEPORFIN
     Indication: POLYPOIDAL CHOROIDAL VASCULOPATHY
     Route: 042
     Dates: start: 20150807
  2. EYLEA [Suspect]
     Active Substance: AFLIBERCEPT
     Dosage: TWICE
     Route: 050
  3. EYLEA [Suspect]
     Active Substance: AFLIBERCEPT
     Indication: POLYPOIDAL CHOROIDAL VASCULOPATHY
     Route: 050
     Dates: start: 20130423

REACTIONS (2)
  - Disease progression [Recovered/Resolved]
  - Polypoidal choroidal vasculopathy [Recovered/Resolved]

NARRATIVE: CASE EVENT DATE: 20151002
